FAERS Safety Report 6616200-6 (Version None)
Quarter: 2010Q1

REPORT INFORMATION
  Report Type: 
  Country: None (occurrence: None)
  Receive Date: 20100305
  Receipt Date: 20100226
  Transmission Date: 20100710
  Serious: Yes (Other)
  Sender: FDA-Public Use
  Company Number: PHHY2010DE11836

PATIENT
  Age: 30 Year
  Sex: Male

DRUGS (4)
  1. LEPONEX [Suspect]
     Dosage: 600 MG, QD
     Route: 048
     Dates: start: 20091214
  2. LEPONEX [Suspect]
     Dosage: 400 MG, QD
     Route: 048
  3. DIAZEPAM [Concomitant]
     Dosage: 8 TO 5 MG PER DAY
     Route: 048
  4. HALOPERIDOL [Concomitant]
     Dosage: 10 MG PER DAY
     Route: 048

REACTIONS (2)
  - ELECTROENCEPHALOGRAM ABNORMAL [None]
  - MYOCLONIC EPILEPSY [None]
